FAERS Safety Report 14853451 (Version 3)
Quarter: 2018Q4

REPORT INFORMATION
  Report Type: Report from Study
  Country: FR (occurrence: FR)
  Receive Date: 20180507
  Receipt Date: 20181022
  Transmission Date: 20190204
  Serious: Yes (Hospitalization, Other)
  Sender: FDA-Public Use
  Company Number: FR-TEVA-2018-FR-889717

PATIENT
  Age: 71 Year
  Sex: Female
  Weight: 68 kg

DRUGS (6)
  1. AVASTIN [Suspect]
     Active Substance: BEVACIZUMAB
     Indication: COLORECTAL CANCER METASTATIC
     Dosage: LAST DOSE PRIOT TO SAE 26/JUN/2014?DATE OF MOST RECENT DOSE PRIOR TO SECOND EPISODE OF NEUTROPENIA:
     Route: 042
     Dates: start: 20140626
  2. AVASTIN [Suspect]
     Active Substance: BEVACIZUMAB
     Dosage: REINTRODUCED AT THIRD COURSE OF CHEMOTHERAPY
     Route: 042
  3. CALCIUM LEVOFOLINATE [Suspect]
     Active Substance: LEVOLEUCOVORIN CALCIUM
     Indication: COLORECTAL CANCER METASTATIC
     Dosage: LAST DOSE PRIOT TO SAE 26/JUN/2014?DATE OF MOST RECENT DOSE PRIOR TO SECOND EPISODE OF NEUTROPENIA:
     Route: 042
     Dates: start: 20140626
  4. 5-FLUOROURACIL [Suspect]
     Active Substance: FLUOROURACIL
     Indication: COLORECTAL CANCER METASTATIC
     Dosage: DATE OF MOST RECENT DOSE PRIOR TO SECOND EPISODE OF NEUTROPENIA: 20/NOV/2014.
     Route: 040
     Dates: start: 20140626
  5. 5-FLUOROURACIL [Suspect]
     Active Substance: FLUOROURACIL
     Dosage: LAST DOSE PRIOT TO SAE 26/JUN/2014
     Route: 042
     Dates: start: 20140628
  6. OXALIPLATIN. [Suspect]
     Active Substance: OXALIPLATIN
     Indication: COLORECTAL CANCER METASTATIC
     Dosage: LAST DOSE PRIOT TO SAE 26/JUN/2014?DATE OF MOST RECENT DOSE PRIOR TO SECOND EPISODE OF NEUTROPENIA:
     Route: 042
     Dates: start: 20140626

REACTIONS (3)
  - Cholecystitis acute [Recovered/Resolved]
  - Neutropenia [Recovered/Resolved]
  - Pyrexia [Recovered/Resolved]

NARRATIVE: CASE EVENT DATE: 20140702
